FAERS Safety Report 5247913-9 (Version None)
Quarter: 2007Q1

REPORT INFORMATION
  Report Type: 
  Country: None (occurrence: None)
  Receive Date: 20070227
  Receipt Date: 20070223
  Transmission Date: 20070707
  Serious: Yes (Other)
  Sender: FDA-Public Use
  Company Number: 200710795EU

PATIENT
  Age: 22 Year
  Sex: Male

DRUGS (1)
  1. NICODERM [Suspect]
     Indication: SMOKING CESSATION THERAPY
     Dosage: 1PAT SINGLE DOSE
     Route: 062
     Dates: start: 20070209, end: 20070209

REACTIONS (6)
  - APPLICATION SITE ERYTHEMA [None]
  - APPLICATION SITE IRRITATION [None]
  - BONE PAIN [None]
  - DYSPNOEA [None]
  - HEMIPLEGIA [None]
  - PAIN [None]
